FAERS Safety Report 10477234 (Version 1)
Quarter: 2014Q3

REPORT INFORMATION
  Report Type: Spontaneous
  Country: JP (occurrence: JP)
  Receive Date: 20140926
  Receipt Date: 20140926
  Transmission Date: 20150326
  Serious: Yes (Other)
  Sender: FDA-Public Use
  Company Number: JP-BRISTOL-MYERS SQUIBB COMPANY-21425962

PATIENT
  Age: 66 Year
  Sex: Male

DRUGS (5)
  1. CARBOPLATIN. [Suspect]
     Active Substance: CARBOPLATIN
     Indication: HYPOPHARYNGEAL CANCER
     Route: 042
  2. CALONAL [Suspect]
     Active Substance: ACETAMINOPHEN
  3. FLUOROURACIL. [Suspect]
     Active Substance: FLUOROURACIL
     Indication: HYPOPHARYNGEAL CANCER
     Route: 042
  4. ERBITUX [Suspect]
     Active Substance: CETUXIMAB
     Indication: HYPOPHARYNGEAL CANCER
     Dosage: 1DF: 5MG/ML
     Route: 041
  5. MINOMYCIN [Suspect]
     Active Substance: MINOCYCLINE HYDROCHLORIDE
     Indication: PROPHYLAXIS
     Route: 048
     Dates: start: 20140612

REACTIONS (1)
  - Platelet count decreased [Recovered/Resolved]

NARRATIVE: CASE EVENT DATE: 20140615
